FAERS Safety Report 21599995 (Version 2)
Quarter: 2022Q4

REPORT INFORMATION
  Report Type: Spontaneous
  Country: CH (occurrence: CH)
  Receive Date: 20221116
  Receipt Date: 20221118
  Transmission Date: 20230113
  Serious: Yes (Other)
  Sender: FDA-Public Use
  Company Number: CH-BAXTER-2022BAX024421

PATIENT
  Sex: Male

DRUGS (29)
  1. DOXORUBICIN [Suspect]
     Active Substance: DOXORUBICIN
     Indication: Plasma cell myeloma
     Dosage: 2 CYCLES, D-PACE REGIMEN
     Route: 065
     Dates: start: 20211018, end: 20211120
  2. CYCLOPHOSPHAMIDE [Suspect]
     Active Substance: CYCLOPHOSPHAMIDE
     Indication: Plasma cell myeloma
     Dosage: 2 CYCLES, D-PACE REGIMEN
     Route: 065
     Dates: start: 20211018, end: 20211120
  3. CYCLOPHOSPHAMIDE [Suspect]
     Active Substance: CYCLOPHOSPHAMIDE
     Dosage: COMBINED WITH ETOPOSIDE AS BRIDGE TO TRANSPLANT
     Route: 065
     Dates: start: 20211216
  4. CYCLOPHOSPHAMIDE [Suspect]
     Active Substance: CYCLOPHOSPHAMIDE
     Dosage: COMBINED WITH ETOPOSIDE AS BRIDGE TO TRANSPLANT
     Route: 065
     Dates: start: 20211223
  5. CYCLOPHOSPHAMIDE [Suspect]
     Active Substance: CYCLOPHOSPHAMIDE
     Dosage: COMBINED WITH ETOPOSIDE AS BRIDGE TO TRANSPLANT
     Route: 065
     Dates: start: 20211230
  6. VELCADE [Suspect]
     Active Substance: BORTEZOMIB
     Indication: Plasma cell myeloma
     Dosage: VRD REGIMEN
     Route: 065
     Dates: start: 20191122, end: 20200210
  7. REVLIMID [Suspect]
     Active Substance: LENALIDOMIDE
     Indication: Plasma cell myeloma
     Dosage: VRD REGIMEN
     Route: 065
     Dates: start: 20191122, end: 20200210
  8. DEXAMETHASONE [Suspect]
     Active Substance: DEXAMETHASONE
     Indication: Plasma cell myeloma
     Dosage: VRD REGIMEN
     Route: 065
     Dates: start: 20191122, end: 20200210
  9. DEXAMETHASONE [Suspect]
     Active Substance: DEXAMETHASONE
     Dosage: 7 CYCLES IN TOTAL, DARAKD REGIMEN
     Route: 065
     Dates: start: 20210315, end: 20211018
  10. DEXAMETHASONE [Suspect]
     Active Substance: DEXAMETHASONE
     Dosage: 2 CYCLES, D-PACE REGIMEN
     Route: 065
     Dates: start: 20211018, end: 20211120
  11. LENALIDOMIDE [Suspect]
     Active Substance: LENALIDOMIDE
     Indication: Plasma cell myeloma
     Dosage: MAINTENANCE CHEMOTHERAPY
     Route: 065
     Dates: start: 20200803, end: 20210224
  12. DARATUMUMAB [Suspect]
     Active Substance: DARATUMUMAB
     Indication: Plasma cell myeloma
     Dosage: 7 CYCLES IN TOTAL, DARAKD REGIMEN
     Route: 065
     Dates: start: 20210315, end: 20211018
  13. CARFILZOMIB [Suspect]
     Active Substance: CARFILZOMIB
     Indication: Plasma cell myeloma
     Dosage: 7 CYCLES IN TOTAL, DARAKD REGIMEN
     Route: 065
     Dates: start: 20210315, end: 20211018
  14. CISPLATIN [Suspect]
     Active Substance: CISPLATIN
     Indication: Plasma cell myeloma
     Dosage: 2 CYCLES, D-PACE REGIMEN
     Route: 065
     Dates: start: 20211018, end: 20211120
  15. ETOPOSIDE [Suspect]
     Active Substance: ETOPOSIDE
     Indication: Plasma cell myeloma
     Dosage: 2 CYCLES, D-PACE REGIMEN
     Route: 065
     Dates: start: 20211018, end: 20211120
  16. ETOPOSIDE [Suspect]
     Active Substance: ETOPOSIDE
     Dosage: COMBINED WITH CYCLOPHOSPHAMIDE AS BRIDGE TO TRANSPLANT
     Route: 065
     Dates: start: 20211216
  17. ETOPOSIDE [Suspect]
     Active Substance: ETOPOSIDE
     Dosage: COMBINED WITH CYCLOPHOSPHAMIDE AS BRIDGE TO TRANSPLANT
     Route: 065
     Dates: start: 20211223
  18. ETOPOSIDE [Suspect]
     Active Substance: ETOPOSIDE
     Dosage: COMBINED WITH CYCLOPHOSPHAMIDE AS BRIDGE TO TRANSPLANT
     Route: 065
     Dates: start: 20211230
  19. FLUDARABINE [Suspect]
     Active Substance: FLUDARABINE PHOSPHATE
     Indication: Plasma cell myeloma
     Dosage: CONDITIONING REGIMEN
     Route: 065
     Dates: start: 20220125
  20. DEXAMETHASONE [Suspect]
     Active Substance: DEXAMETHASONE
     Indication: Plasma cell myeloma
     Dosage: 2 CYCLES
     Route: 065
     Dates: start: 20220902, end: 20221107
  21. BUSULFAN [Suspect]
     Active Substance: BUSULFAN
     Indication: Plasma cell myeloma
     Dosage: CONDITIONING REGIMEN
     Route: 065
     Dates: start: 20220125
  22. LETERMOVIR [Concomitant]
     Active Substance: LETERMOVIR
     Indication: Prophylaxis
     Route: 065
  23. VALACYCLOVIR HYDROCHLORIDE [Concomitant]
     Active Substance: VALACYCLOVIR HYDROCHLORIDE
     Indication: Product used for unknown indication
     Route: 065
  24. SULFAMETHOXAZOLE\TRIMETHOPRIM [Concomitant]
     Active Substance: SULFAMETHOXAZOLE\TRIMETHOPRIM
     Indication: Product used for unknown indication
     Route: 065
  25. CALCIUM [Concomitant]
     Active Substance: CALCIUM
     Indication: Product used for unknown indication
     Route: 065
  26. CYCLOSPORINE [Concomitant]
     Active Substance: CYCLOSPORINE
     Indication: Prophylaxis against graft versus host disease
     Dosage: 6 MONTHS POST ALLOGENEIC TRANSPLANT PROGRESSION
     Route: 065
  27. MYCOPHENOLATE MOFETIL [Concomitant]
     Active Substance: MYCOPHENOLATE MOFETIL
     Indication: Prophylaxis against graft versus host disease
     Dosage: 6 MONTHS POST ALLOGENEIC TRANSPLANT PROGRESSION
     Route: 065
  28. ELOTUZUMAB [Suspect]
     Active Substance: ELOTUZUMAB
  29. POMALIDOMIDE [Suspect]
     Active Substance: POMALIDOMIDE

REACTIONS (1)
  - Plasma cell myeloma [Unknown]
